FAERS Safety Report 9358595 (Version 1)
Quarter: 2013Q2

REPORT INFORMATION
  Report Type: Spontaneous
  Country: CN (occurrence: CN)
  Receive Date: 20130620
  Receipt Date: 20130620
  Transmission Date: 20140414
  Serious: Yes (Other)
  Sender: FDA-Public Use
  Company Number: PHHY2013CN058658

PATIENT
  Age: 35 Year
  Sex: Female
  Weight: 60 kg

DRUGS (5)
  1. HYDRALAZINE [Suspect]
     Dosage: 10 MG, QID
  2. HYDRALAZINE [Suspect]
     Dosage: 25 MG, QID
  3. PHENTOLAMINE [Concomitant]
     Indication: HYPERTENSION
     Dosage: 5 MG, UNK
     Route: 042
  4. MAGNESIUM SULFATE [Concomitant]
     Dosage: 1 G IN 25% SOLUTION, UNK
  5. BETAMETHASONE [Concomitant]
     Dosage: 0.1 MG, UNK
     Route: 030

REACTIONS (5)
  - Foetal distress syndrome [Unknown]
  - Premature delivery [Unknown]
  - Blood pressure increased [Recovering/Resolving]
  - Agitation [Unknown]
  - Maternal exposure during pregnancy [Unknown]
